FAERS Safety Report 10043377 (Version 1)
Quarter: 2014Q1

REPORT INFORMATION
  Report Type: Spontaneous
  Country: US (occurrence: None)
  Receive Date: 20140327
  Receipt Date: 20140327
  Transmission Date: 20141002
  Serious: Yes (Other)
  Sender: FDA-Public Use
  Company Number: None

PATIENT
  Age: 48 Year
  Sex: Female
  Weight: 44.45 kg

DRUGS (1)
  1. LEVAQUIN [Suspect]
     Indication: SINUS DISORDER
     Dates: start: 20080813

REACTIONS (12)
  - Thermal burn [None]
  - Headache [None]
  - Blister [None]
  - Dyspnoea [None]
  - Convulsion [None]
  - Confusional state [None]
  - Anxiety [None]
  - Speech disorder [None]
  - Mental disorder [None]
  - Fear of death [None]
  - Myalgia [None]
  - Arthralgia [None]
